FAERS Safety Report 9685335 (Version 2)
Quarter: 2013Q4

REPORT INFORMATION
  Report Type: Spontaneous
  Country: US (occurrence: US)
  Receive Date: 20131113
  Receipt Date: 20131221
  Transmission Date: 20140711
  Serious: Yes (Hospitalization)
  Sender: FDA-Public Use
  Company Number: PHEH2013US023587

PATIENT
  Age: 35 Year
  Sex: Male

DRUGS (3)
  1. FANAPT [Suspect]
     Indication: SCHIZOAFFECTIVE DISORDER
     Dosage: 08 MG, BID
     Route: 048
     Dates: start: 20131105, end: 20131118
  2. FLUOXETINE [Concomitant]
     Indication: DEPRESSION
     Dosage: 20 MG PER DAY
     Route: 048
     Dates: start: 20130601
  3. AMBIEN [Concomitant]
     Indication: DEPRESSION
     Dosage: 10 MG, QHS

REACTIONS (2)
  - Azoospermia [Recovered/Resolved]
  - Retrograde ejaculation [Recovered/Resolved]
